FAERS Safety Report 6221631-2 (Version None)
Quarter: 2009Q2

REPORT INFORMATION
  Report Type: 
  Country: None (occurrence: None)
  Receive Date: 20090608
  Receipt Date: 20090601
  Transmission Date: 20091009
  Serious: Yes (Death)
  Sender: FDA-Public Use
  Company Number: IT-WYE-G03783909

PATIENT
  Age: 62 Year
  Sex: Male

DRUGS (4)
  1. TEMSIROLIMUS (TEMSIROLIMUS, CONCENTRATE FOR SOLUTION FOR INFUSION, 0) [Suspect]
     Indication: ACUTE MYELOID LEUKAEMIA
     Dosage: 25 MG 1X PER 1 DAY, 25 MG 1X PER 1 DAY
     Dates: start: 20090511, end: 20090511
  2. TEMSIROLIMUS (TEMSIROLIMUS, CONCENTRATE FOR SOLUTION FOR INFUSION, 0) [Suspect]
     Indication: ACUTE MYELOID LEUKAEMIA
     Dosage: 25 MG 1X PER 1 DAY, 25 MG 1X PER 1 DAY
     Dates: start: 20090518, end: 20090518
  3. EVOLTRA (CLOFARABINE, , 0) [Suspect]
     Dosage: 25 MG 1X PER 1 DAY
     Dates: start: 20090518, end: 20090518
  4. NOXAFIL [Concomitant]

REACTIONS (5)
  - ACUTE RESPIRATORY FAILURE [None]
  - BLOOD CULTURE POSITIVE [None]
  - BLOOD POTASSIUM INCREASED [None]
  - BRONCHOPNEUMONIA [None]
  - STAPHYLOCOCCAL INFECTION [None]
